FAERS Safety Report 6992369-9 (Version None)
Quarter: 2010Q3

REPORT INFORMATION
  Report Type: 
  Country: None (occurrence: None)
  Receive Date: 20100917
  Receipt Date: 20100910
  Transmission Date: 20110219
  Serious: Yes (Hospitalization, Other)
  Sender: FDA-Public Use
  Company Number: DE-ELI_LILLY_AND_COMPANY-DE201009002774

PATIENT
  Age: 60 Year
  Sex: Male
  Weight: 80 kg

DRUGS (3)
  1. CIALIS [Suspect]
     Indication: ERECTILE DYSFUNCTION
     Dosage: 20 MG, UNKNOWN
     Route: 065
     Dates: start: 20050101, end: 20100101
  2. ATACAND [Concomitant]
     Indication: HYPERTENSION
     Dosage: 16 MG, UNKNOWN
     Route: 065
     Dates: start: 20050101, end: 20100101
  3. HCT [Concomitant]
     Indication: HYPERTENSION
     Dosage: 12.5 MG, UNKNOWN
     Route: 065
     Dates: start: 20090101, end: 20100101

REACTIONS (1)
  - CEREBELLAR HAEMATOMA [None]
